FAERS Safety Report 8510982-4 (Version None)
Quarter: 2012Q3

REPORT INFORMATION
  Report Type: 
  Country: None (occurrence: None)
  Receive Date: 20120710
  Receipt Date: 20120710
  Transmission Date: 20120928
  Serious: No
  Sender: FDA-Public Use
  Company Number: None

PATIENT
  Age: 94 Year
  Sex: Male
  Weight: 63.5036 kg

DRUGS (1)
  1. TIMOLOL MALEATE [Suspect]
     Indication: GLAUCOMA
     Dosage: 1 DROP EACH EYE QAM OPHTHALMIC ABOUT 5-8 YEARS
     Route: 047

REACTIONS (4)
  - THROAT IRRITATION [None]
  - SPEECH DISORDER [None]
  - INSTILLATION SITE PAIN [None]
  - DRY THROAT [None]
